FAERS Safety Report 13306999 (Version 1)
Quarter: 2017Q1

REPORT INFORMATION
  Report Type: Spontaneous
  Country: CO (occurrence: CO)
  Receive Date: 20170308
  Receipt Date: 20170308
  Transmission Date: 20170428
  Serious: Yes (Other)
  Sender: FDA-Public Use
  Company Number: CO-ASTRAZENECA-2017SE23125

PATIENT
  Age: 46 Year
  Sex: Male

DRUGS (2)
  1. INVOKANA [Concomitant]
     Active Substance: CANAGLIFLOZIN
  2. KOMBIGLYZE XR [Suspect]
     Active Substance: METFORMIN HYDROCHLORIDE\SAXAGLIPTIN HYDROCHLORIDE
     Route: 048

REACTIONS (1)
  - Metabolic acidosis [Recovered/Resolved]
